FAERS Safety Report 7647391-6 (Version None)
Quarter: 2011Q3

REPORT INFORMATION
  Report Type: 
  Country: None (occurrence: None)
  Receive Date: 20110729
  Receipt Date: 20110729
  Transmission Date: 20111222
  Serious: No
  Sender: FDA-Public Use
  Company Number: None

PATIENT
  Sex: Female
  Weight: 46.1 kg

DRUGS (4)
  1. DACARBAZINE [Suspect]
     Dosage: 544 MG
  2. DOXORUBICIN HYDROCHLORIDE [Suspect]
     Dosage: 36 MG
  3. VINBLASTINE SULFATE [Suspect]
     Dosage: 8.7 MG
  4. BLEOMYCIN [Suspect]
     Dosage: 14.5 UNIT

REACTIONS (1)
  - NEUTROPHIL COUNT DECREASED [None]
